FAERS Safety Report 24062400 (Version 1)
Quarter: 2024Q3

REPORT INFORMATION
  Report Type: Other
  Country: CN (occurrence: CN)
  Receive Date: 20240708
  Receipt Date: 20240708
  Transmission Date: 20241016
  Serious: Yes (Other)
  Sender: GE HEALTHCARE
  Company Number: CN-GE HEALTHCARE-2024CSU007426

PATIENT
  Age: 61 Year
  Sex: Female
  Weight: 65 kg

DRUGS (1)
  1. OMNIPAQUE [Suspect]
     Active Substance: IOHEXOL
     Indication: Computerised tomogram abdomen
     Dosage: 100 ML, TOTAL
     Route: 042
     Dates: start: 20240601, end: 20240601

REACTIONS (5)
  - Lacrimation disorder [Recovered/Resolved]
  - Deafness [Recovered/Resolved]
  - Eyelid oedema [Recovered/Resolved]
  - Conjunctival hyperaemia [Recovered/Resolved]
  - Contrast media allergy [Recovered/Resolved]

NARRATIVE: CASE EVENT DATE: 20240601
